FAERS Safety Report 6656744-4 (Version None)
Quarter: 2010Q1

REPORT INFORMATION
  Report Type: 
  Country: None (occurrence: None)
  Receive Date: 20100324
  Receipt Date: 20100311
  Transmission Date: 20100710
  Serious: Yes (Death)
  Sender: FDA-Public Use
  Company Number: DSA_42645_2010

PATIENT
  Sex: Female

DRUGS (4)
  1. XENAZINE [Suspect]
     Indication: HUNTINGTON'S CHOREA
     Dosage: 12.5 MG TID ORAL
     Route: 048
     Dates: start: 20090604
  2. BACLOFEN [Concomitant]
  3. REMERON [Concomitant]
  4. KLONOPIN [Concomitant]

REACTIONS (1)
  - DEATH [None]
